FAERS Safety Report 21489763 (Version 3)
Quarter: 2023Q2

REPORT INFORMATION
  Report Type: Spontaneous
  Country: CA (occurrence: CA)
  Receive Date: 20221021
  Receipt Date: 20230407
  Transmission Date: 20230722
  Serious: Yes (Hospitalization, Other)
  Sender: FDA-Public Use
  Company Number: CA-JNJFOC-20221025513

PATIENT
  Age: 78 Year
  Sex: Male
  Weight: 71 kg

DRUGS (9)
  1. DARZALEX [Suspect]
     Active Substance: DARATUMUMAB
     Indication: Plasma cell myeloma
     Route: 058
     Dates: start: 20221007
  2. ROSUVASTATIN [Concomitant]
     Active Substance: ROSUVASTATIN
  3. OMEPRAZOLE [Concomitant]
     Active Substance: OMEPRAZOLE
  4. GLYCOPYRROLATE\INDACATEROL MALEATE [Concomitant]
     Active Substance: GLYCOPYRROLATE\INDACATEROL MALEATE
  5. IPRATROPIUM [Concomitant]
     Active Substance: IPRATROPIUM
  6. LENALIDOMIDE [Concomitant]
     Active Substance: LENALIDOMIDE
  7. FUROSEMIDE [Concomitant]
     Active Substance: FUROSEMIDE
  8. NITROGLYCERIN [Concomitant]
     Active Substance: NITROGLYCERIN
  9. MIRABEGRON [Concomitant]
     Active Substance: MIRABEGRON

REACTIONS (5)
  - Myocardial necrosis marker increased [Unknown]
  - Tachycardia [Unknown]
  - Chest pain [Unknown]
  - Malaise [Unknown]
  - Hypertension [Unknown]
